FAERS Safety Report 9753406 (Version 2)
Quarter: 2013Q4

REPORT INFORMATION
  Report Type: Spontaneous
  Country: US (occurrence: US)
  Receive Date: 20131213
  Receipt Date: 20131213
  Transmission Date: 20140711
  Serious: Yes (Other)
  Sender: FDA-Public Use
  Company Number: US-TEVA-403555USA

PATIENT
  Age: 33 Year
  Sex: Female
  Weight: 127.12 kg

DRUGS (3)
  1. PARAGARD 380A [Suspect]
     Indication: CONTRACEPTION
     Route: 015
     Dates: start: 201112
  2. VITAMINS [Concomitant]
     Indication: SUPPLEMENTATION THERAPY
  3. PRILOSEC [Concomitant]
     Indication: ABDOMINAL DISCOMFORT

REACTIONS (3)
  - Device dislocation [Not Recovered/Not Resolved]
  - Pelvic pain [Not Recovered/Not Resolved]
  - Menorrhagia [Not Recovered/Not Resolved]
